FAERS Safety Report 4619866-5 (Version None)
Quarter: 2005Q1

REPORT INFORMATION
  Report Type: 
  Country: None (occurrence: None)
  Receive Date: 20050328
  Receipt Date: 20050316
  Transmission Date: 20050727
  Serious: Yes (Hospitalization, Other)
  Sender: FDA-Public Use
  Company Number: US-JNJFOC-20041206629

PATIENT
  Sex: Female

DRUGS (5)
  1. REMICADE [Suspect]
     Route: 042
  2. REMICADE [Suspect]
     Indication: RHEUMATOID ARTHRITIS
     Route: 042
  3. ARAVA [Concomitant]
  4. HYDROCHLOROTHIAZIDE [Concomitant]
  5. MOTRIN [Concomitant]

REACTIONS (3)
  - BACK PAIN [None]
  - PYREXIA [None]
  - RASH PUSTULAR [None]
